FAERS Safety Report 18599926 (Version 1)
Quarter: 2020Q4

REPORT INFORMATION
  Report Type: Spontaneous
  Country: US (occurrence: US)
  Receive Date: 20201209
  Receipt Date: 20201209
  Transmission Date: 20210114
  Serious: Yes (Other)
  Sender: FDA-Public Use
  Company Number: None

PATIENT
  Age: 63 Year
  Sex: Male
  Weight: 80.74 kg

DRUGS (1)
  1. CIPROFLOXACIN. [Suspect]
     Active Substance: CIPROFLOXACIN
     Dates: start: 20201109, end: 20201113

REACTIONS (6)
  - Dizziness [None]
  - Adverse drug reaction [None]
  - Renal pain [None]
  - Therapy cessation [None]
  - Confusional state [None]
  - Yellow skin [None]

NARRATIVE: CASE EVENT DATE: 20201112
